FAERS Safety Report 14694677 (Version 1)
Quarter: 2018Q1

REPORT INFORMATION
  Report Type: Report from Study
  Country: US (occurrence: US)
  Receive Date: 20180329
  Receipt Date: 20180329
  Transmission Date: 20180509
  Serious: Yes (Other)
  Sender: FDA-Public Use
  Company Number: PHEH2018US011187

PATIENT
  Age: 65 Year

DRUGS (1)
  1. COSENTYX [Suspect]
     Active Substance: SECUKINUMAB
     Indication: PRODUCT USED FOR UNKNOWN INDICATION
     Dosage: 300 MG, QMO
     Route: 042

REACTIONS (6)
  - Fungal oesophagitis [Unknown]
  - Malaise [Unknown]
  - Dysphagia [Unknown]
  - Incorrect route of drug administration [Unknown]
  - Lip swelling [Unknown]
  - Odynophagia [Unknown]

NARRATIVE: CASE EVENT DATE: 20180313
